FAERS Safety Report 22225785 (Version 3)
Quarter: 2023Q2

REPORT INFORMATION
  Report Type: Spontaneous
  Country: US (occurrence: None)
  Receive Date: 20230418
  Receipt Date: 20230517
  Transmission Date: 20230722
  Serious: No
  Sender: FDA-Public Use
  Company Number: 2023A079053

PATIENT

DRUGS (1)
  1. SAPHNELO [Suspect]
     Active Substance: ANIFROLUMAB-FNIA
     Dosage: UNKNOWN
     Route: 042

REACTIONS (9)
  - Migraine [Unknown]
  - Hypersensitivity [Unknown]
  - Lactose intolerance [Unknown]
  - Diarrhoea [Unknown]
  - Illness [Unknown]
  - Crying [Unknown]
  - Arthralgia [Unknown]
  - Dysstasia [Unknown]
  - Inappropriate schedule of product administration [Unknown]

NARRATIVE: CASE EVENT DATE: 20230101
